FAERS Safety Report 21892831 (Version 1)
Quarter: 2023Q1

REPORT INFORMATION
  Report Type: Spontaneous
  Country: US (occurrence: US)
  Receive Date: 20230120
  Receipt Date: 20230120
  Transmission Date: 20230418
  Serious: No
  Sender: FDA-Public Use
  Company Number: US-JAZZ-2022-US-034165

PATIENT
  Age: 51 Year
  Sex: Female

DRUGS (1)
  1. XYWAV [Suspect]
     Active Substance: CALCIUM OXYBATE\MAGNESIUM OXYBATE\POTASSIUM OXYBATE\SODIUM OXYBATE
     Indication: Product used for unknown indication
     Dosage: UNK
     Route: 048
     Dates: start: 20220924

REACTIONS (4)
  - Acidosis [Recovering/Resolving]
  - Hypoglycaemia [Recovering/Resolving]
  - Nervous system disorder [Recovering/Resolving]
  - Electrolyte imbalance [Recovering/Resolving]
